FAERS Safety Report 15788105 (Version 1)
Quarter: 2019Q1

REPORT INFORMATION
  Report Type: Report from Study
  Country: MX (occurrence: MX)
  Receive Date: 20190104
  Receipt Date: 20190104
  Transmission Date: 20190417
  Serious: No
  Sender: FDA-Public Use
  Company Number: MX-ROCHE-2239539

PATIENT
  Age: 50 Year
  Sex: Female
  Weight: 70 kg

DRUGS (5)
  1. METILPREDNISOLONE [Concomitant]
     Active Substance: METHYLPREDNISOLONE
     Dosage: 100 MG IN 100 ML OF SALINE SOLUTION IN 10 MINUTES
     Route: 065
  2. CHLOR-TRIMETON [Concomitant]
     Active Substance: CHLORPHENIRAMINE MALEATE
     Dosage: 10 MG IN 100 ML OF SALINE SOLUTION IN 10 MINUTES
     Route: 042
  3. RANITIDINE. [Concomitant]
     Active Substance: RANITIDINE
     Dosage: 50 MG IN 100ML IN 10 MINUTES
     Route: 042
  4. PARACETAMOL [Concomitant]
     Active Substance: ACETAMINOPHEN
     Route: 065
  5. OCREVUS [Suspect]
     Active Substance: OCRELIZUMAB
     Indication: MULTIPLE SCLEROSIS
     Dosage: 300MG EVERY 15DAYS, RESTS FOR 6 MONTHS
     Route: 042
     Dates: start: 20181217

REACTIONS (1)
  - Influenza [Not Recovered/Not Resolved]

NARRATIVE: CASE EVENT DATE: 20181227
